FAERS Safety Report 11566399 (Version 2)
Quarter: 2015Q4

REPORT INFORMATION
  Report Type: Spontaneous
  Country: US (occurrence: US)
  Receive Date: 20150916
  Receipt Date: 20151027
  Transmission Date: 20160304
  Serious: No
  Sender: FDA-Public Use
  Company Number: US-ELI_LILLY_AND_COMPANY-US200906000602

PATIENT
  Age: 55 Year
  Sex: Female
  Weight: 62.59 kg

DRUGS (10)
  1. CELEBREX [Concomitant]
     Active Substance: CELECOXIB
  2. CETIRIZINE [Concomitant]
     Active Substance: CETIRIZINE HYDROCHLORIDE
     Dosage: 1 D/F, DAILY (1/D)
  3. VIOXX [Concomitant]
     Active Substance: ROFECOXIB
  4. FISH OIL [Concomitant]
     Active Substance: FISH OIL
     Dosage: 1 D/F, 2/D
  5. SINGULAIR [Concomitant]
     Active Substance: MONTELUKAST SODIUM
  6. AMITRIPTYLINE [Concomitant]
     Active Substance: AMITRIPTYLINE
  7. FLUTICASONE PROPIONATE. [Concomitant]
     Active Substance: FLUTICASONE PROPIONATE
  8. VITAMIN D3 [Concomitant]
     Active Substance: CHOLECALCIFEROL
     Dosage: 200 IU, UNK
  9. FORTEO [Suspect]
     Active Substance: TERIPARATIDE
     Dosage: UNK, UNK
     Dates: start: 20080921
  10. BABY ASPIRIN [Concomitant]
     Active Substance: ASPIRIN

REACTIONS (12)
  - Dyspnoea [Not Recovered/Not Resolved]
  - Lower limb fracture [Unknown]
  - Pruritus [Not Recovered/Not Resolved]
  - Osteogenesis imperfecta [Unknown]
  - Decreased appetite [Not Recovered/Not Resolved]
  - Wrist fracture [Recovered/Resolved]
  - Contusion [Not Recovered/Not Resolved]
  - Asthma [Not Recovered/Not Resolved]
  - Skin atrophy [Not Recovered/Not Resolved]
  - Weight increased [Not Recovered/Not Resolved]
  - Fall [Recovered/Resolved]
  - Skin disorder [Not Recovered/Not Resolved]

NARRATIVE: CASE EVENT DATE: 200809
